FAERS Safety Report 9406261 (Version 1)
Quarter: 2013Q3

REPORT INFORMATION
  Report Type: Spontaneous
  Country: US (occurrence: US)
  Receive Date: 20130717
  Receipt Date: 20130717
  Transmission Date: 20140515
  Serious: No
  Sender: FDA-Public Use
  Company Number: US-BAUSCH-BL-2013-002700

PATIENT
  Age: 30 Year
  Sex: Female

DRUGS (6)
  1. BESIVANCE (BESIFLOXACIN OPHTHALMIC SUSPENSION) 0.6% [Suspect]
     Indication: OFF LABEL USE
     Dosage: 1 DROP IN EACH EYE, TWO TIMES PER DAY
     Route: 047
     Dates: start: 20130210, end: 20130219
  2. BESIVANCE (BESIFLOXACIN OPHTHALMIC SUSPENSION) 0.6% [Suspect]
     Indication: PREOPERATIVE CARE
  3. BESIVANCE (BESIFLOXACIN OPHTHALMIC SUSPENSION) 0.6% [Suspect]
     Indication: POSTOPERATIVE CARE
  4. AZITHROMYCIN [Concomitant]
  5. BENZONATATE [Concomitant]
  6. PREDNISONE [Concomitant]

REACTIONS (1)
  - Vision blurred [Not Recovered/Not Resolved]
